FAERS Safety Report 6508020-8 (Version None)
Quarter: 2009Q4

REPORT INFORMATION
  Report Type: 
  Country: None (occurrence: None)
  Receive Date: 20091201
  Receipt Date: 20090824
  Transmission Date: 20100525
  Serious: Yes (Hospitalization)
  Sender: FDA-Public Use
  Company Number: 2009-194926-NL

PATIENT
  Age: 21 Year
  Sex: Female
  Weight: 114.3065 kg

DRUGS (3)
  1. NUVARING [Suspect]
     Indication: CONTRACEPTION
     Dosage: 1 DF
     Dates: start: 20080601, end: 20080901
  2. WELLBUTRIN [Concomitant]
  3. MULTI-VITAMINS [Concomitant]

REACTIONS (1)
  - DEEP VEIN THROMBOSIS [None]
